FAERS Safety Report 9000033 (Version 3)
Quarter: 2013Q1

REPORT INFORMATION
  Report Type: Spontaneous
  Country: US (occurrence: US)
  Receive Date: 20130102
  Receipt Date: 20130117
  Transmission Date: 20140127
  Serious: Yes (Hospitalization, Other)
  Sender: FDA-Public Use
  Company Number: US-PFIZER INC-2012333045

PATIENT
  Age: 74 Year
  Sex: Female
  Weight: 65.31 kg

DRUGS (24)
  1. DILANTIN [Suspect]
     Indication: CONVULSION
     Dosage: 100MG IN MORNING AND 130MG AT NIGHT
     Route: 048
  2. DILANTIN [Suspect]
     Indication: CONVULSION
     Dosage: 230 MG, TOTAL DAILY
  3. DILANTIN [Suspect]
     Dosage: 30 MG,1 CAP DAILY IN PM
     Route: 048
  4. DILANTIN [Suspect]
     Dosage: 100 MG, 1 CAP(S), 2X/DAY
     Route: 048
  5. DILANTIN [Suspect]
     Dosage: 100 MG BID 30 MG PM
     Route: 048
     Dates: start: 20100208
  6. COREG [Concomitant]
     Indication: HYPERTENSION
     Dosage: UNK
  7. ASPIRIN [Concomitant]
     Dosage: 81, 1X/DAY
  8. SYNTHROID [Concomitant]
     Dosage: UNK
  9. SYNTHROID [Concomitant]
     Dosage: 50 MG, 1 TAB DAILY
  10. LISINOPRIL [Concomitant]
     Dosage: UNK
  11. LISINOPRIL [Concomitant]
     Dosage: 5 MG, 1 TAB(S) 1X/DAY
  12. PRAVASTATIN [Concomitant]
     Dosage: UNK
  13. PRAVASTATIN [Concomitant]
     Dosage: 80 MG, 1 TAB(S) 1X/DAY (AT BEDTIME)
  14. DONEPEZIL [Concomitant]
     Dosage: UNK
  15. ATIVAN [Concomitant]
     Dosage: 1 MG IN THE MORNING, 1 MG IN THE AFTERNOON, 2 MG AT NIGHT
  16. ATIVAN [Concomitant]
     Dosage: 2 MG,1/2 TAB 2X/DAY
  17. NITROGLYCERIN [Concomitant]
     Dosage: UNK, PRN
  18. CARVEDILOL [Concomitant]
     Dosage: 6.25 MG,1 TAB(S) 2X/DAY
  19. CITALOPRAM [Concomitant]
     Indication: MOOD ALTERED
     Dosage: UNK
  20. ARICEPT [Concomitant]
     Indication: COGNITIVE DISORDER
     Dosage: 10 AT BEDTIME
  21. ARICEPT [Concomitant]
     Indication: COGNITIVE DISORDER
     Dosage: 10 MG, 1 TAB(S) 1X/DAY (AT BEDTIME)
     Route: 048
  22. NITROQUICK [Concomitant]
     Dosage: 0.4 MG, 1 TAB(S) Q5MIN
  23. SENNA [Concomitant]
     Dosage: 50 MG-8.6 MG TABLET 2 TAB(S) PRN
  24. FERROUS FUMARATE [Concomitant]
     Dosage: 325 MG,1 TAB(S)  1X/DAY

REACTIONS (10)
  - Fall [Unknown]
  - Hip fracture [Unknown]
  - Drug level decreased [Unknown]
  - Convulsion [Unknown]
  - Oedema peripheral [Unknown]
  - Tongue biting [Unknown]
  - Sensory disturbance [Unknown]
  - Hyporeflexia [Unknown]
  - Haemoglobin decreased [Unknown]
  - Haematocrit decreased [Unknown]
